FAERS Safety Report 7819451-8 (Version None)
Quarter: 2011Q4

REPORT INFORMATION
  Report Type: 
  Country: None (occurrence: None)
  Receive Date: 20111018
  Receipt Date: 20110805
  Transmission Date: 20120403
  Serious: No
  Sender: FDA-Public Use
  Company Number: US-ASTRAZENECA-2011SE47174

PATIENT
  Age: 48 Year
  Sex: Female
  Weight: 87.5 kg

DRUGS (3)
  1. SYMBICORT [Suspect]
     Indication: PNEUMONIA
     Dosage: 160/4.5 MCG, ONCE PUFF TWICE DAILY
     Route: 055
     Dates: start: 20110722, end: 20110803
  2. EFFEXOR [Concomitant]
  3. CLONAZEPAM [Concomitant]

REACTIONS (3)
  - DRUG INEFFECTIVE FOR UNAPPROVED INDICATION [None]
  - DRUG PRESCRIBING ERROR [None]
  - PNEUMONIA [None]
